FAERS Safety Report 9781231 (Version 1)
Quarter: 2013Q4

REPORT INFORMATION
  Report Type: Spontaneous
  Country: IT (occurrence: IT)
  Receive Date: 20131224
  Receipt Date: 20131224
  Transmission Date: 20140711
  Serious: Yes (Death, Other)
  Sender: FDA-Public Use
  Company Number: PHHY2013IT149662

PATIENT
  Sex: 0

DRUGS (5)
  1. DEXTROMETHORPHAN [Suspect]
  2. PARACETAMOL [Suspect]
  3. CAFFEINE [Suspect]
  4. DIACETYLMORPHINE [Suspect]
  5. LIDOCAINE [Suspect]

REACTIONS (3)
  - Toxicity to various agents [Fatal]
  - Overdose [Fatal]
  - Pulmonary oedema [Unknown]
